FAERS Safety Report 8684221 (Version 3)
Quarter: 2013Q1

REPORT INFORMATION
  Report Type: Spontaneous
  Country: US (occurrence: US)
  Receive Date: 20120726
  Receipt Date: 20130125
  Transmission Date: 20140127
  Serious: No
  Sender: FDA-Public Use
  Company Number: US-ASTRAZENECA-2009SE07837

PATIENT
  Age: 58 Year
  Sex: Female

DRUGS (2)
  1. SEROQUEL [Suspect]
     Route: 048
  2. SEROQUEL [Suspect]
     Route: 048

REACTIONS (15)
  - Anaemia [Unknown]
  - Bipolar disorder [Unknown]
  - Blood pressure abnormal [Unknown]
  - Haemorrhage [Unknown]
  - Rectal tenesmus [Unknown]
  - Headache [Unknown]
  - Haemorrhoids [Unknown]
  - Blood count abnormal [Unknown]
  - Panic attack [Unknown]
  - Feeling abnormal [Unknown]
  - Malaise [Unknown]
  - Thyroid disorder [Unknown]
  - Hypersomnia [Unknown]
  - Constipation [Unknown]
  - Drug dose omission [Unknown]
